FAERS Safety Report 25818251 (Version 3)
Quarter: 2025Q4

REPORT INFORMATION
  Report Type: Spontaneous
  Country: TR (occurrence: TR)
  Receive Date: 20250918
  Receipt Date: 20251007
  Transmission Date: 20260117
  Serious: Yes (Other)
  Sender: ELI LILLY AND COMPANY
  Company Number: TR-ELI_LILLY_AND_COMPANY-TR202509013364

PATIENT
  Age: 50 Year
  Sex: Female

DRUGS (2)
  1. MOUNJARO [Interacting]
     Active Substance: TIRZEPATIDE
     Indication: Weight control
     Dosage: 2.5 MG, UNKNOWN
     Route: 065
     Dates: start: 202506, end: 202508
  2. MOUNJARO [Interacting]
     Active Substance: TIRZEPATIDE
     Indication: Weight control
     Dosage: 5 MG, UNKNOWN
     Route: 065
     Dates: start: 202508

REACTIONS (14)
  - Hypersensitivity [Unknown]
  - Head discomfort [Unknown]
  - Hypoaesthesia [Unknown]
  - Nasopharyngitis [Unknown]
  - Cough [Unknown]
  - Blood glucose increased [Unknown]
  - Increased appetite [Unknown]
  - Menopause [Unknown]
  - Blood glucose decreased [Unknown]
  - Mental impairment [Unknown]
  - Malaise [Unknown]
  - Drug interaction [Unknown]
  - Drug dose titration not performed [Unknown]
  - Drug ineffective [Unknown]

NARRATIVE: CASE EVENT DATE: 20250801
